FAERS Safety Report 5278854-9 (Version None)
Quarter: 2007Q1

REPORT INFORMATION
  Report Type: 
  Country: None (occurrence: None)
  Receive Date: 20061208
  Receipt Date: 20060323
  Transmission Date: 20070707
  Serious: No
  Sender: FDA-Public Use
  Company Number: 2005UW16322

PATIENT
  Age: 52 Year
  Sex: Female
  Weight: 29.5 kg

DRUGS (1)
  1. CRESTOR [Suspect]
     Indication: DYSLIPIDAEMIA
     Dosage: 5 MG HS PO
     Route: 048

REACTIONS (2)
  - DIARRHOEA [None]
  - STOMACH DISCOMFORT [None]
